FAERS Safety Report 18674439 (Version 1)
Quarter: 2020Q4

REPORT INFORMATION
  Report Type: Spontaneous
  Country: US (occurrence: US)
  Receive Date: 20201228
  Receipt Date: 20201228
  Transmission Date: 20210114
  Serious: Yes (Hospitalization)
  Sender: FDA-Public Use
  Company Number: None

PATIENT
  Age: 90 Year
  Sex: Male
  Weight: 76.2 kg

DRUGS (1)
  1. BAMLANIVIMAB. [Suspect]
     Active Substance: BAMLANIVIMAB
     Indication: SARS-COV-2 TEST POSITIVE
     Dosage: ?          OTHER FREQUENCY:ONCE;?
     Route: 040
     Dates: start: 20201226

REACTIONS (6)
  - Pyrexia [None]
  - Confusional state [None]
  - Chills [None]
  - Agitation [None]
  - Tachycardia [None]
  - Mental status changes [None]

NARRATIVE: CASE EVENT DATE: 20201226
